FAERS Safety Report 8545029-7 (Version None)
Quarter: 2012Q3

REPORT INFORMATION
  Report Type: 
  Country: None (occurrence: None)
  Receive Date: 20120727
  Receipt Date: 20120719
  Transmission Date: 20120928
  Serious: Yes (Hospitalization, Other)
  Sender: FDA-Public Use
  Company Number: BR-JNJFOC-20120708677

PATIENT
  Sex: Female

DRUGS (7)
  1. WARFARIN SODIUM [Concomitant]
     Dates: start: 20120709
  2. XARELTO [Suspect]
     Indication: DEEP VEIN THROMBOSIS
     Route: 048
     Dates: start: 20120627
  3. ENOXAPARIN [Concomitant]
     Route: 058
     Dates: start: 20120708
  4. ENOXAPARIN [Concomitant]
     Route: 058
     Dates: start: 20120625, end: 20120627
  5. XARELTO [Suspect]
     Indication: EMBOLISM VENOUS
     Route: 048
     Dates: start: 20120706, end: 20120707
  6. XARELTO [Suspect]
     Route: 048
     Dates: start: 20120706, end: 20120707
  7. XARELTO [Suspect]
     Route: 048
     Dates: start: 20120627

REACTIONS (6)
  - INCISION SITE HAEMORRHAGE [None]
  - POST PROCEDURAL HAEMORRHAGE [None]
  - DEVICE DISLOCATION [None]
  - BREAST HAEMATOMA [None]
  - MENORRHAGIA [None]
  - HAEMOGLOBIN DECREASED [None]
